FAERS Safety Report 4874736-2 (Version None)
Quarter: 2006Q1

REPORT INFORMATION
  Report Type: 
  Country: None (occurrence: None)
  Receive Date: 20060103
  Receipt Date: 20060103
  Transmission Date: 20060701
  Serious: Yes (Hospitalization, Other)
  Sender: FDA-Public Use
  Company Number: None

PATIENT
  Sex: Male
  Weight: 98.2 kg

DRUGS (12)
  1. IFOSFAMIDE [Suspect]
     Indication: BURKITT'S LYMPHOMA
     Dosage: SEE IMAGE
     Dates: start: 20051129
  2. IFOSFAMIDE [Suspect]
     Indication: LEUKAEMIA
     Dosage: SEE IMAGE
     Dates: start: 20051129
  3. MESNA [Suspect]
     Dosage: SEE IMAGE
  4. VINCRISTINE [Suspect]
     Dosage: SEE IMAGE
  5. METHOTREXATE [Suspect]
     Dosage: SEE IMAGE
     Dates: start: 20051129, end: 20051130
  6. LEUCOVORIN [Suspect]
     Dosage: SEE IMAGE
     Dates: start: 20051101, end: 20051216
  7. CYTARABINE [Suspect]
     Dosage: SEE IMAGE
  8. ETOPOSIDE [Suspect]
     Dosage: SEE IMAGE
  9. CYTOXAN [Suspect]
     Dosage: SEE IMAGE
  10. DOXORUBICIN [Suspect]
     Dosage: SEE IMAGE
     Dates: start: 20051202, end: 20051203
  11. DECADRON [Suspect]
     Dosage: SEE IMAGE
  12. RITUXIMAB [Suspect]
     Dosage: SEE IMAGE

REACTIONS (5)
  - BLOOD CREATINE INCREASED [None]
  - HAEMODIALYSIS [None]
  - MUCOSAL INFLAMMATION [None]
  - PAIN [None]
  - TONGUE DISORDER [None]
